FAERS Safety Report 4762095-5 (Version None)
Quarter: 2005Q3

REPORT INFORMATION
  Report Type: 
  Country: None (occurrence: None)
  Receive Date: 20050901
  Receipt Date: 20050510
  Transmission Date: 20060218
  Serious: No
  Sender: FDA-Public Use
  Company Number: 200510942BWH

PATIENT
  Age: 57 Year
  Sex: Male

DRUGS (5)
  1. LEVITRA [Suspect]
     Indication: ERECTILE DYSFUNCTION
     Dosage: 20 MG, TOTAL DAILY, ORAL
     Route: 048
     Dates: start: 20050508
  2. ACTOS [Concomitant]
  3. METFORMIN [Concomitant]
  4. AMARYL [Concomitant]
  5. INSULIN [Concomitant]

REACTIONS (1)
  - ERECTILE DYSFUNCTION [None]
